FAERS Safety Report 5484120-9 (Version None)
Quarter: 2007Q4

REPORT INFORMATION
  Report Type: 
  Country: None (occurrence: None)
  Receive Date: 20071012
  Receipt Date: 20071001
  Transmission Date: 20080405
  Serious: Yes (Other)
  Sender: FDA-Public Use
  Company Number: US-SHR-US-2007-036439

PATIENT
  Age: 61 Year
  Sex: Female

DRUGS (7)
  1. BETASERON [Suspect]
     Route: 058
     Dates: start: 20010611, end: 20050208
  2. BETASERON [Suspect]
     Dosage: 8 MIU, EVERY 2D
     Route: 058
     Dates: start: 20070320, end: 20070927
  3. BETASERON [Suspect]
     Dosage: 8 MIU, EVERY 2D
     Route: 058
     Dates: start: 20071001
  4. OXYCONTIN [Concomitant]
     Indication: BACK PAIN
     Dosage: 20 MG, 1X/DAY
     Dates: start: 20020101
  5. OXYCONTIN [Concomitant]
     Dosage: 10 MG, EVERY 2D
  6. OXYCONTIN [Concomitant]
     Dosage: 10 MG, EVERY 3D
     Dates: end: 20070901
  7. COPAXONE [Concomitant]
     Dates: start: 20060725, end: 20070101

REACTIONS (10)
  - BACK PAIN [None]
  - CHEST DISCOMFORT [None]
  - CHEST PAIN [None]
  - CORONARY ARTERY OCCLUSION [None]
  - DRUG DOSE OMISSION [None]
  - DYSPNOEA [None]
  - INCISION SITE PAIN [None]
  - MULTIPLE SCLEROSIS [None]
  - PYREXIA [None]
  - TREMOR [None]
